FAERS Safety Report 4396311-9 (Version None)
Quarter: 2004Q3

REPORT INFORMATION
  Report Type: 
  Country: None (occurrence: None)
  Receive Date: 20040713
  Receipt Date: 20040705
  Transmission Date: 20050211
  Serious: Yes (Hospitalization)
  Sender: FDA-Public Use
  Company Number: FR-GLAXOSMITHKLINE-B0337634A

PATIENT
  Age: 36 Year
  Sex: Female

DRUGS (4)
  1. ZENTEL [Suspect]
     Dosage: 400MG PER DAY
     Route: 048
     Dates: start: 20040525, end: 20040527
  2. TOPALGIC ( FRANCE ) [Suspect]
     Indication: PAIN
     Route: 048
     Dates: start: 20040525, end: 20040531
  3. OMEPRAZOLE [Suspect]
     Indication: ILL-DEFINED DISORDER
     Dosage: 20MG PER DAY
     Route: 048
     Dates: start: 20040529, end: 20040601
  4. CORTICOTHERAPY [Concomitant]
     Indication: SARCOIDOSIS
     Route: 065

REACTIONS (3)
  - ALANINE AMINOTRANSFERASE INCREASED [None]
  - ASPARTATE AMINOTRANSFERASE INCREASED [None]
  - HEPATITIS [None]
